FAERS Safety Report 5127647-1 (Version None)
Quarter: 2006Q4

REPORT INFORMATION
  Report Type: 
  Country: None (occurrence: None)
  Receive Date: 20061016
  Receipt Date: 20061009
  Transmission Date: 20070319
  Serious: Yes (Death)
  Sender: FDA-Public Use
  Company Number: GXKR2006DE06401

PATIENT
  Age: 64 Year
  Sex: Female

DRUGS (2)
  1. SIMVASTATIN [Suspect]
     Indication: HYPERLIPIDAEMIA
     Dosage: 80 MG, QD
     Route: 048
  2. CYCLOSPORINE [Suspect]
     Indication: RENAL TRANSPLANT

REACTIONS (4)
  - BLOOD CREATINE PHOSPHOKINASE INCREASED [None]
  - CARDIAC FAILURE ACUTE [None]
  - DRUG INTERACTION [None]
  - RHABDOMYOLYSIS [None]
